FAERS Safety Report 7216365-1 (Version None)
Quarter: 2011Q1

REPORT INFORMATION
  Report Type: 
  Country: None (occurrence: None)
  Receive Date: 20110107
  Receipt Date: 20110104
  Transmission Date: 20110831
  Serious: Yes (Other)
  Sender: FDA-Public Use
  Company Number: US-PFIZER INC-2006133476

PATIENT
  Sex: Male
  Weight: 91 kg

DRUGS (3)
  1. ADVIL [Concomitant]
  2. CHANTIX [Suspect]
     Indication: SMOKING CESSATION THERAPY
     Dosage: 0.5MG DAILY
     Dates: start: 20061001
  3. CHANTIX [Suspect]
     Dosage: 0.5 MG, DAILY
     Route: 048
     Dates: start: 20101228

REACTIONS (4)
  - NAUSEA [None]
  - DRUG INEFFECTIVE [None]
  - TOOTH ABSCESS [None]
  - ABNORMAL DREAMS [None]
